FAERS Safety Report 23453690 (Version 1)
Quarter: 2024Q1

REPORT INFORMATION
  Report Type: Spontaneous
  Country: US (occurrence: US)
  Receive Date: 20240129
  Receipt Date: 20240129
  Transmission Date: 20240409
  Serious: No
  Sender: FDA-Public Use
  Company Number: US-BAUSCHBL-2023BNL013899

PATIENT
  Age: 69 Year
  Sex: Male

DRUGS (3)
  1. DORZOLAMIDE HYDROCHLORIDE AND TIMOLOL MALEATE OPHTHALMIC SOLUTION [Suspect]
     Active Substance: DORZOLAMIDE HYDROCHLORIDE\TIMOLOL MALEATE
     Indication: Glaucoma
     Dosage: STARTED ABOUT 5 OR 6 YEARS AGO
     Route: 047
     Dates: end: 2023
  2. DORZOLAMIDE HYDROCHLORIDE AND TIMOLOL MALEATE OPHTHALMIC SOLUTION [Suspect]
     Active Substance: DORZOLAMIDE HYDROCHLORIDE\TIMOLOL MALEATE
     Dosage: TWO OR THREE MONTHS AGO
     Route: 047
     Dates: start: 2023
  3. ZIOPTAN [Concomitant]
     Active Substance: TAFLUPROST
     Indication: Product used for unknown indication

REACTIONS (2)
  - Vision blurred [Unknown]
  - Inappropriate schedule of product administration [Unknown]

NARRATIVE: CASE EVENT DATE: 20230101
